FAERS Safety Report 12950198 (Version 1)
Quarter: 2016Q4

REPORT INFORMATION
  Report Type: Spontaneous
  Country: BR (occurrence: BR)
  Receive Date: 20161117
  Receipt Date: 20161117
  Transmission Date: 20170207
  Serious: Yes (Other)
  Sender: FDA-Public Use
  Company Number: BR-PFIZER INC-2016530189

PATIENT
  Age: 53 Year
  Sex: Female
  Weight: 70 kg

DRUGS (6)
  1. CYMBALTA [Concomitant]
     Active Substance: DULOXETINE HYDROCHLORIDE
     Indication: DEPRESSION
     Dosage: 60 MG, 1X/DAY
     Route: 048
  2. FRONTAL [Suspect]
     Active Substance: ALPRAZOLAM
     Indication: FEELING OF RELAXATION
  3. TREZOR [Concomitant]
     Active Substance: ROSUVASTATIN CALCIUM
     Indication: BLOOD CHOLESTEROL
     Dosage: 20 MG, 1X/DAY
     Route: 048
  4. FRONTAL [Suspect]
     Active Substance: ALPRAZOLAM
     Indication: DEPRESSION
     Dosage: 1 MG, 1X/DAY
     Route: 048
     Dates: start: 2009
  5. FRONTAL [Suspect]
     Active Substance: ALPRAZOLAM
     Indication: CRYING
  6. DIOVAN [Concomitant]
     Active Substance: VALSARTAN
     Indication: BLOOD PRESSURE INCREASED
     Dosage: 1 DF, 1X/DAY
     Route: 048

REACTIONS (7)
  - Product use issue [Not Recovered/Not Resolved]
  - Panic disorder [Unknown]
  - Insomnia [Unknown]
  - Suicidal ideation [Unknown]
  - Aggression [Unknown]
  - Hallucination, auditory [Unknown]
  - Crying [Unknown]
